FAERS Safety Report 5959618-7 (Version None)
Quarter: 2008Q4

REPORT INFORMATION
  Report Type: 
  Country: None (occurrence: None)
  Receive Date: 20081106
  Receipt Date: 20080401
  Transmission Date: 20090506
  Serious: Yes (Other)
  Sender: FDA-Public Use
  Company Number: US200804000231

PATIENT
  Age: 54 Year
  Sex: Male

DRUGS (1)
  1. PROZAC [Suspect]
     Indication: DEPRESSION
     Dosage: 20 MG, DAILY(1/D),UNK
     Dates: start: 19910101, end: 20070101

REACTIONS (2)
  - IDIOPATHIC PULMONARY FIBROSIS [None]
  - LUNG DISORDER [None]
